FAERS Safety Report 14339772 (Version 2)
Quarter: 2018Q4

REPORT INFORMATION
  Report Type: Report from Study
  Country: None (occurrence: TR)
  Receive Date: 20171230
  Receipt Date: 20181005
  Transmission Date: 20190204
  Serious: Yes (Death, Life-Threatening, Other)
  Sender: FDA-Public Use
  Company Number: TR-BAUSCH-BL-2017-035353

PATIENT
  Age: 54 Year
  Sex: Male

DRUGS (12)
  1. PREDNISOLONE. [Suspect]
     Active Substance: PREDNISOLONE
     Route: 065
     Dates: start: 20130830, end: 2014
  2. HEPARIN [Concomitant]
     Active Substance: HEPARIN SODIUM
     Indication: PROPHYLAXIS
     Route: 058
  3. VALACYCLOVIR [Concomitant]
     Active Substance: VALACYCLOVIR HYDROCHLORIDE
     Indication: PROPHYLAXIS
     Route: 048
  4. TACROLIMUS. [Concomitant]
     Active Substance: TACROLIMUS
     Route: 061
  5. TACROLIMUS. [Concomitant]
     Active Substance: TACROLIMUS
     Indication: SKIN GRAFT REJECTION
     Dosage: INCREASE IN TACROLIMUS DRUG DOSAGE
     Route: 061
  6. MYCOPHENOLATE MOFETIL. [Suspect]
     Active Substance: MYCOPHENOLATE MOFETIL
     Indication: IMMUNOSUPPRESSION
     Route: 065
  7. SULFADOXINE, PYRIMETHAMINE [Concomitant]
     Indication: PROPHYLAXIS
  8. PROGRAF [Suspect]
     Active Substance: TACROLIMUS\TACROLIMUS ANHYDROUS
     Indication: IMMUNOSUPPRESSION
     Dosage: TAPERED TO 7-10 NG/ML 6 MONTHS POSTOPERATIVELY
     Route: 065
     Dates: start: 2013
  9. NYSTATIN. [Concomitant]
     Active Substance: NYSTATIN
     Indication: PROPHYLAXIS
     Route: 048
  10. ANTITHYMOCYTE GLOBULIN [Concomitant]
     Active Substance: THYMOCYTE IMMUNE GLOBULIN NOS
     Indication: PRODUCT USED FOR UNKNOWN INDICATION
  11. PREDNISOLONE. [Suspect]
     Active Substance: PREDNISOLONE
     Indication: IMMUNOSUPPRESSION
     Route: 065
     Dates: start: 20130823, end: 20130830
  12. PREDNISOLONE. [Suspect]
     Active Substance: PREDNISOLONE
     Route: 065
     Dates: start: 2014

REACTIONS (4)
  - Squamous cell carcinoma [Fatal]
  - Cerebral aspergillosis [Fatal]
  - Post transplant lymphoproliferative disorder [Fatal]
  - Opportunistic infection [Fatal]
